FAERS Safety Report 7183954-2 (Version None)
Quarter: 2010Q4

REPORT INFORMATION
  Report Type: 
  Country: None (occurrence: None)
  Receive Date: 20101222
  Receipt Date: 20101214
  Transmission Date: 20110411
  Serious: Yes (Death, Other)
  Sender: FDA-Public Use
  Company Number: JP-ROCHE-748167

PATIENT
  Sex: Female
  Weight: 41 kg

DRUGS (5)
  1. AVASTIN [Suspect]
     Indication: COLON CANCER METASTATIC
     Dosage: ACTION TAKEN: DISCONTINUED
     Route: 041
     Dates: start: 20101208, end: 20101208
  2. 5-FU [Suspect]
     Indication: COLON CANCER METASTATIC
     Route: 040
     Dates: start: 20101208, end: 20101210
  3. 5-FU [Suspect]
     Dosage: ROUTE: INTRAVENOUS DRIP, ACTION TAKEN: DISCONTINUED
     Route: 040
  4. ELPLAT [Suspect]
     Indication: COLON CANCER METASTATIC
     Dosage: ACTION TAKEN: DISCONTINUED
     Route: 041
     Dates: start: 20101208, end: 20101208
  5. LEVOFOLINATE [Concomitant]
     Dosage: ACTION TAKEN: DISCONTINUED
     Route: 041
     Dates: start: 20101208, end: 20101208

REACTIONS (3)
  - DEATH [None]
  - DYSPNOEA [None]
  - LOSS OF CONSCIOUSNESS [None]
